FAERS Safety Report 13431323 (Version 1)
Quarter: 2017Q2

REPORT INFORMATION
  Report Type: Spontaneous
  Country: US (occurrence: US)
  Receive Date: 20170412
  Receipt Date: 20170412
  Transmission Date: 20170830
  Serious: No
  Sender: FDA-Public Use
  Company Number: US-ASTRAZENECA-2006BM13994

PATIENT
  Age: 699 Month
  Sex: Male
  Weight: 85.3 kg

DRUGS (11)
  1. AVANDIA [Concomitant]
     Active Substance: ROSIGLITAZONE MALEATE
     Indication: TYPE 2 DIABETES MELLITUS
     Route: 065
     Dates: start: 2002
  2. PRECOSE [Concomitant]
     Active Substance: ACARBOSE
     Indication: TYPE 2 DIABETES MELLITUS
     Dosage: 100.0MG UNKNOWN
     Route: 065
  3. ALTACE [Concomitant]
     Active Substance: RAMIPRIL
     Route: 065
     Dates: start: 2001
  4. BYETTA [Suspect]
     Active Substance: EXENATIDE
     Indication: TYPE 2 DIABETES MELLITUS
     Route: 058
     Dates: start: 20060111
  5. METFORMIN [Concomitant]
     Active Substance: METFORMIN HYDROCHLORIDE
     Indication: TYPE 2 DIABETES MELLITUS
     Route: 065
  6. GLYBURIDE. [Concomitant]
     Active Substance: GLYBURIDE
     Indication: TYPE 2 DIABETES MELLITUS
     Route: 065
     Dates: start: 2004
  7. BYDUREON [Suspect]
     Active Substance: EXENATIDE
     Route: 058
  8. BYETTA [Suspect]
     Active Substance: EXENATIDE
     Indication: TYPE 2 DIABETES MELLITUS
     Route: 058
     Dates: start: 200604
  9. BYETTA [Suspect]
     Active Substance: EXENATIDE
     Indication: TYPE 2 DIABETES MELLITUS
     Route: 058
     Dates: start: 20060104, end: 20060110
  10. BYETTA [Suspect]
     Active Substance: EXENATIDE
     Indication: TYPE 2 DIABETES MELLITUS
     Route: 058
     Dates: start: 200603, end: 200604
  11. BYETTA [Suspect]
     Active Substance: EXENATIDE
     Indication: TYPE 2 DIABETES MELLITUS
     Route: 058
     Dates: start: 200604

REACTIONS (7)
  - Sneezing [Not Recovered/Not Resolved]
  - Dysgeusia [Not Recovered/Not Resolved]
  - Constipation [Recovered/Resolved]
  - Product quality issue [Unknown]
  - Vomiting [Not Recovered/Not Resolved]
  - Wrong technique in product usage process [Unknown]
  - Parosmia [Not Recovered/Not Resolved]

NARRATIVE: CASE EVENT DATE: 200603
